FAERS Safety Report 6091062-7 (Version None)
Quarter: 2009Q1

REPORT INFORMATION
  Report Type: 
  Country: None (occurrence: None)
  Receive Date: 20090225
  Receipt Date: 20090219
  Transmission Date: 20090719
  Serious: Yes (Hospitalization)
  Sender: FDA-Public Use
  Company Number: FR-JNJFOC-20090204823

PATIENT
  Age: 81 Year
  Sex: Female

DRUGS (1)
  1. TAVANIC [Suspect]
     Indication: LUNG DISORDER
     Route: 048

REACTIONS (4)
  - GLOSSITIS [None]
  - ODYNOPHAGIA [None]
  - RASH MACULO-PAPULAR [None]
  - RASH MORBILLIFORM [None]
